FAERS Safety Report 13457342 (Version 1)
Quarter: 2017Q2

REPORT INFORMATION
  Report Type: Spontaneous
  Country: US (occurrence: US)
  Receive Date: 20170418
  Receipt Date: 20170418
  Transmission Date: 20170830
  Serious: Yes (Disabling)
  Sender: FDA-Public Use
  Company Number: None

PATIENT
  Age: 28 Year
  Sex: Female
  Weight: 40.95 kg

DRUGS (6)
  1. FLAGYL [Suspect]
     Active Substance: METRONIDAZOLE\METRONIDAZOLE HYDROCHLORIDE
     Indication: BACTERIAL VAGINOSIS
     Dosage: ?          QUANTITY:14 CAPSULE(S);?
     Route: 048
  2. PROBIOTICS WITH PREBIOTICS [Concomitant]
  3. GARLIC SUPPLEMENTS [Concomitant]
  4. EMERGEN C [Concomitant]
     Active Substance: MINERALS\VITAMINS
  5. LEXAPRO [Concomitant]
     Active Substance: ESCITALOPRAM OXALATE
  6. WELLBUTRIN [Concomitant]
     Active Substance: BUPROPION HYDROCHLORIDE

REACTIONS (1)
  - Clostridium difficile infection [None]

NARRATIVE: CASE EVENT DATE: 20170401
